FAERS Safety Report 10174741 (Version 2)
Quarter: 2014Q2

REPORT INFORMATION
  Report Type: Spontaneous
  Country: US (occurrence: US)
  Receive Date: 20140515
  Receipt Date: 20140620
  Transmission Date: 20141212
  Serious: Yes (Hospitalization, Other)
  Sender: FDA-Public Use
  Company Number: US-PFIZER INC-2014131222

PATIENT
  Age: 71 Year
  Sex: Male

DRUGS (1)
  1. INLYTA [Suspect]
     Indication: METASTATIC RENAL CELL CARCINOMA
     Dosage: 5 MG, 2X/DAY
     Route: 048
     Dates: start: 20140411, end: 20140505

REACTIONS (4)
  - Convulsion [Recovered/Resolved]
  - Coma [Unknown]
  - Posterior reversible encephalopathy syndrome [Unknown]
  - Hypertension [Unknown]
